FAERS Safety Report 9196940 (Version 1)
Quarter: 2013Q1

REPORT INFORMATION
  Report Type: Report from Study
  Country: US (occurrence: US)
  Receive Date: 20130328
  Receipt Date: 20130328
  Transmission Date: 20140127
  Serious: Yes (Death)
  Sender: FDA-Public Use
  Company Number: US-ROCHE-1171170

PATIENT
  Sex: Female

DRUGS (16)
  1. CAPECITABINE [Suspect]
     Indication: NEOPLASM MALIGNANT
     Route: 065
  2. VICODIN [Concomitant]
     Dosage: 1 OR 2 TABLETS BY MOUTH AT BED TIME AS NEEDED FOR PAIN
     Route: 048
  3. DILAUDID COUGH SYRUP [Concomitant]
     Dosage: AS NEEDED FOR PAIN
     Route: 048
  4. OXYCONTIN [Concomitant]
     Route: 048
  5. ROXICODONE [Concomitant]
     Dosage: 1 OR 2 TABLETS FOR EVERY 4 HOURS AS NEEDED FOR PAIN
     Route: 048
  6. MIRALAX [Concomitant]
     Route: 048
  7. DESYREL [Concomitant]
     Dosage: 1 TO 5 TABLETS AT BED TIME
     Route: 048
  8. ATIVAN [Concomitant]
     Route: 048
  9. COLACE [Concomitant]
     Route: 048
  10. DOCUSATE SODIUM [Concomitant]
     Route: 048
  11. BUPROPION [Concomitant]
     Route: 048
  12. CITRATE OF MAGNESIA [Concomitant]
     Dosage: AS NEEDED
     Route: 048
  13. CELEXA [Concomitant]
     Dosage: TO BE TAKEN WITH 40 MG OF TABLET WITH TOTAL 60 MG
     Route: 048
  14. CELEXA [Concomitant]
     Dosage: TAKEN WITH 20 MG OF TABLET WITH TOTAL 40 MG
     Route: 048
  15. PROCHLORPERAZINE MALEATE [Concomitant]
     Dosage: AS NEEDED
     Route: 065
  16. PHILLIPS^ MILK OF MAGNESIA [Concomitant]
     Route: 065

REACTIONS (3)
  - Disease progression [Fatal]
  - Fatigue [Unknown]
  - Hypersomnia [Unknown]
